FAERS Safety Report 8625939-2 (Version None)
Quarter: 2012Q3

REPORT INFORMATION
  Report Type: 
  Country: None (occurrence: None)
  Receive Date: 20120827
  Receipt Date: 20120821
  Transmission Date: 20120928
  Serious: Yes (Hospitalization)
  Sender: FDA-Public Use
  Company Number: US-MILLENNIUM PHARMACEUTICALS, INC.-2011-04293

PATIENT
  Sex: Male
  Weight: 93.424 kg

DRUGS (10)
  1. ZOFRAN [Concomitant]
     Indication: PRODUCT USED FOR UNKNOWN INDICATION
  2. CIPRO                              /00042702/ [Concomitant]
     Indication: PRODUCT USED FOR UNKNOWN INDICATION
  3. DURAGESIC-100 [Concomitant]
     Indication: PAIN
     Dosage: 100 A?G, UNK
  4. VELCADE [Suspect]
     Indication: MULTIPLE MYELOMA
     Dosage: 2.95 MG, CYCLIC
     Route: 042
     Dates: start: 20110207, end: 20110303
  5. ARMODAFINIL [Concomitant]
     Indication: PRODUCT USED FOR UNKNOWN INDICATION
  6. XANAX [Concomitant]
     Indication: PRODUCT USED FOR UNKNOWN INDICATION
  7. MORPHINE SULFATE [Concomitant]
     Indication: PAIN
     Dosage: UNK
  8. DECADRON [Suspect]
     Indication: MULTIPLE MYELOMA
     Dosage: UNK
  9. MIRALAX [Concomitant]
     Indication: PRODUCT USED FOR UNKNOWN INDICATION
  10. VALTREX [Concomitant]
     Indication: PRODUCT USED FOR UNKNOWN INDICATION

REACTIONS (4)
  - CONFUSIONAL STATE [None]
  - FATIGUE [None]
  - PSEUDOMEMBRANOUS COLITIS [None]
  - ASTHENIA [None]
